FAERS Safety Report 4982389-8 (Version None)
Quarter: 2006Q2

REPORT INFORMATION
  Report Type: 
  Country: None (occurrence: None)
  Receive Date: 20060425
  Receipt Date: 20060330
  Transmission Date: 20061013
  Serious: Yes (Death, Hospitalization)
  Sender: FDA-Public Use
  Company Number: US-BRISTOL-MYERS SQUIBB COMPANY-13332341

PATIENT
  Age: 44 Year
  Sex: Female
  Weight: 77 kg

DRUGS (2)
  1. ERBITUX [Suspect]
     Indication: CERVIX CARCINOMA
     Dosage: INITIATED 10-FEB-2006 = 400 MG/M2 F/B 250 MG/M2 WEEKLY/TOTAL DOSE ADMIN. THIS COURSE = 926 MG.
     Route: 042
     Dates: start: 20060310, end: 20060310
  2. CISPLATIN [Suspect]
     Indication: CERVIX CARCINOMA
     Dosage: INITIATED 10-FEB-2006/TOTAL DOSE ADMINISTERED THIS COURSE = 112 MG.
     Route: 042
     Dates: start: 20060310, end: 20060310

REACTIONS (1)
  - CORONARY ARTERY INSUFFICIENCY [None]
